FAERS Safety Report 10576610 (Version 1)
Quarter: 2014Q4

REPORT INFORMATION
  Report Type: Spontaneous
  Country: US (occurrence: None)
  Receive Date: 20141110
  Receipt Date: 20141110
  Transmission Date: 20150529
  Serious: No
  Sender: FDA-Public Use
  Company Number: None

PATIENT
  Age: 64 Year
  Sex: Male
  Weight: 107.05 kg

DRUGS (1)
  1. SULFAMETHOXAZOLE-TRIMETHOPRIM (SMZ) [Suspect]
     Active Substance: SULFAMETHOXAZOLE\TRIMETHOPRIM
     Indication: STAPHYLOCOCCAL INFECTION
     Dosage: ONE TABLET
     Route: 048
     Dates: start: 20141101, end: 20141108

REACTIONS (9)
  - Abdominal pain upper [None]
  - Pyrexia [None]
  - Dehydration [None]
  - Hypophagia [None]
  - Hallucination [None]
  - Decreased appetite [None]
  - Chills [None]
  - Dyspnoea [None]
  - Rash erythematous [None]

NARRATIVE: CASE EVENT DATE: 20141105
